FAERS Safety Report 8124948-X (Version None)
Quarter: 2012Q1

REPORT INFORMATION
  Report Type: 
  Country: None (occurrence: None)
  Receive Date: 20120209
  Receipt Date: 20120207
  Transmission Date: 20120608
  Serious: Yes (Hospitalization, Other)
  Sender: FDA-Public Use
  Company Number: BR-ROCHE-1038171

PATIENT
  Sex: Female
  Weight: 46 kg

DRUGS (3)
  1. MABTHERA [Suspect]
     Indication: RHEUMATOID ARTHRITIS
     Route: 042
     Dates: start: 20110601
  2. OMEPRAZOLE [Concomitant]
  3. ATENOLOL [Concomitant]

REACTIONS (2)
  - PERICARDIAL EFFUSION [None]
  - ANAEMIA [None]
